FAERS Safety Report 24738653 (Version 4)
Quarter: 2025Q1

REPORT INFORMATION
  Report Type: Spontaneous
  Country: PR (occurrence: PR)
  Receive Date: 20241216
  Receipt Date: 20250124
  Transmission Date: 20250409
  Serious: No
  Sender: PFIZER
  Company Number: PR-PFIZER INC-2020379488

PATIENT
  Age: 9 Year
  Sex: Male
  Weight: 19.5 kg

DRUGS (2)
  1. GENOTROPIN [Suspect]
     Active Substance: SOMATROPIN
     Indication: Growth disorder
     Dates: start: 2018
  2. GENOTROPIN [Suspect]
     Active Substance: SOMATROPIN
     Dosage: 0.6 INJECTION EVERY NIGHT
     Dates: start: 202005

REACTIONS (6)
  - Product dispensing issue [Unknown]
  - Product dose omission issue [Unknown]
  - Device use issue [Unknown]
  - Device issue [Unknown]
  - Device delivery system issue [Unknown]
  - Drug dose omission by device [Unknown]

NARRATIVE: CASE EVENT DATE: 20200101
